FAERS Safety Report 8603197 (Version 6)
Quarter: 2013Q3

REPORT INFORMATION
  Report Type: Spontaneous
  Country: US (occurrence: US)
  Receive Date: 20120607
  Receipt Date: 20130802
  Transmission Date: 20140515
  Serious: Yes (Other)
  Sender: FDA-Public Use
  Company Number: US-GLAXOSMITHKLINE-A0976979A

PATIENT
  Age: 59 Year
  Sex: Male
  Weight: 126.4 kg

DRUGS (4)
  1. AVODART [Suspect]
     Indication: BENIGN PROSTATIC HYPERPLASIA
     Dosage: .5MG PER DAY
     Route: 048
     Dates: start: 20070512, end: 20120307
  2. DIABETES MEDICATION [Concomitant]
  3. MEDICATION FOR HIGH BLOOD PRESSURE [Concomitant]
  4. ANTI-ANXIETY MED- NAME UNKNOWN [Concomitant]

REACTIONS (4)
  - Prostate cancer [Not Recovered/Not Resolved]
  - Fatigue [Unknown]
  - Ill-defined disorder [Unknown]
  - Prostatic specific antigen increased [Unknown]
